FAERS Safety Report 19957729 (Version 1)
Quarter: 2021Q4

REPORT INFORMATION
  Report Type: Spontaneous
  Country: US (occurrence: US)
  Receive Date: 20211015
  Receipt Date: 20211015
  Transmission Date: 20220303
  Serious: No
  Sender: FDA-Public Use
  Company Number: US-JNJFOC-20211023479

PATIENT
  Age: 47 Year
  Sex: Female

DRUGS (12)
  1. ZYRTEC [Suspect]
     Active Substance: CETIRIZINE HYDROCHLORIDE
     Indication: Rash macular
     Route: 065
     Dates: start: 20210424
  2. ZYRTEC [Suspect]
     Active Substance: CETIRIZINE HYDROCHLORIDE
     Indication: Pruritus
  3. PREDNISONE [Concomitant]
     Active Substance: PREDNISONE
     Indication: Rash macular
     Route: 065
  4. PREDNISONE [Concomitant]
     Active Substance: PREDNISONE
     Indication: Pruritus
  5. BENADRYL [Concomitant]
     Active Substance: DIPHENHYDRAMINE HYDROCHLORIDE
     Indication: Rash macular
     Route: 065
  6. BENADRYL [Concomitant]
     Active Substance: DIPHENHYDRAMINE HYDROCHLORIDE
     Indication: Pruritus
  7. IMITREX [Concomitant]
     Active Substance: SUMATRIPTAN SUCCINATE
     Indication: Migraine
     Route: 048
  8. LAMICTAL [Concomitant]
     Active Substance: LAMOTRIGINE
     Indication: Seizure
     Route: 048
  9. PEPCID [Concomitant]
     Active Substance: FAMOTIDINE
     Indication: Product used for unknown indication
     Route: 065
  10. HYDROCORTISONE [Concomitant]
     Active Substance: HYDROCORTISONE
     Indication: Eczema
     Dosage: ON FACE AND HANDS
     Route: 061
  11. DEXAMETHASONE [Concomitant]
     Active Substance: DEXAMETHASONE
     Indication: Mouth swelling
     Route: 065
  12. COVID-19 VACCINE [Concomitant]
     Indication: COVID-19 immunisation
     Dosage: LEFT ARM
     Route: 065

REACTIONS (2)
  - Product use in unapproved indication [Unknown]
  - Overdose [Unknown]

NARRATIVE: CASE EVENT DATE: 20210424
